FAERS Safety Report 5455080-1 (Version None)
Quarter: 2007Q3

REPORT INFORMATION
  Report Type: 
  Country: None (occurrence: None)
  Receive Date: 20070913
  Receipt Date: 20061204
  Transmission Date: 20080115
  Serious: Yes (Other)
  Sender: FDA-Public Use
  Company Number: 6027944

PATIENT
  Age: 21 Year
  Sex: Male

DRUGS (1)
  1. ACICLOVIR (INTRAVENOUS INFUSION) (ACICLOVIR) [Suspect]
     Indication: VARICELLA
     Dosage: ( 10 MG/KG) INTRAVENOUS (NOT OTHERWISE SPECIFIED)
     Route: 042

REACTIONS (4)
  - NAUSEA [None]
  - RENAL FAILURE ACUTE [None]
  - RENAL ISCHAEMIA [None]
  - RENAL TUBULAR DISORDER [None]
